FAERS Safety Report 5754513-0 (Version None)
Quarter: 2008Q2

REPORT INFORMATION
  Report Type: 
  Country: None (occurrence: None)
  Receive Date: 20080530
  Receipt Date: 20080320
  Transmission Date: 20081010
  Serious: No
  Sender: FDA-Public Use
  Company Number: US-BOEHRINGER INGELHEIM GMBH, GERMANY-2008-BP-02390BP

PATIENT
  Sex: Female

DRUGS (8)
  1. SPIRIVA [Suspect]
     Indication: DYSPNOEA
     Route: 055
     Dates: start: 20071001
  2. SPIRIVA [Suspect]
  3. SYMBICORT [Suspect]
     Indication: DYSPNOEA
  4. SOMA [Concomitant]
     Indication: MUSCLE SPASMS
  5. XANAX [Concomitant]
  6. POTASSIUM CHLORIDE [Concomitant]
  7. BIOTIN [Concomitant]
  8. CARTIA XT [Concomitant]

REACTIONS (9)
  - DRUG INEFFECTIVE [None]
  - EXTRASYSTOLES [None]
  - HEADACHE [None]
  - HEART RATE ABNORMAL [None]
  - HYPOAESTHESIA [None]
  - PAIN IN EXTREMITY [None]
  - PALPITATIONS [None]
  - URINARY TRACT INFECTION [None]
  - WEIGHT INCREASED [None]
